FAERS Safety Report 8503989 (Version 2)
Quarter: 2012Q4

REPORT INFORMATION
  Report Type: 
  Country: US (occurrence: US)
  Receive Date: 20120411
  Receipt Date: 20121127
  Transmission Date: 20130627
  Serious: Yes (Other)
  Sender: FDA-Public Use
  Company Number: US-ROCHE-1057986

PATIENT
  Sex: Male
  Weight: 81.72 kg

DRUGS (3)
  1. ACCUTANE [Suspect]
     Indication: PRODUCT USED FOR UNKNOWN INDICATION
     Route: 065
     Dates: start: 199706, end: 200007
  2. ACCUTANE [Suspect]
     Route: 065
     Dates: start: 1998
  3. ACCUTANE [Suspect]
     Route: 065
     Dates: start: 200002, end: 200007

REACTIONS (4)
  - Colitis ulcerative [Unknown]
  - Inflammatory bowel disease [Unknown]
  - Chapped lips [Unknown]
  - Headache [Unknown]
